FAERS Safety Report 4604736-9 (Version None)
Quarter: 2005Q2

REPORT INFORMATION
  Report Type: 
  Country: None (occurrence: None)
  Receive Date: 20050217
  Receipt Date: 20041108
  Transmission Date: 20051028
  Serious: No
  Sender: FDA-Public Use
  Company Number: S04-USA-07283-01

PATIENT
  Age: 86 Year
  Sex: Female

DRUGS (1)
  1. NAMENDA [Suspect]
     Indication: AMNESIA
     Dosage: 5 MG QD PO
     Route: 048
     Dates: start: 20041106

REACTIONS (2)
  - DIZZINESS [None]
  - HEADACHE [None]
